FAERS Safety Report 8737877 (Version 2)
Quarter: 2013Q1

REPORT INFORMATION
  Report Type: Report from Study
  Country: JP (occurrence: JP)
  Receive Date: 20120823
  Receipt Date: 20130130
  Transmission Date: 20140127
  Serious: Yes (Other)
  Sender: FDA-Public Use
  Company Number: JP-MERCK-2012SP034499

PATIENT
  Age: 68 Year
  Sex: Female
  Weight: 59 kg

DRUGS (11)
  1. PEGINTRON [Suspect]
     Indication: CHRONIC HEPATITIS C
     Dosage: 1.5 MICROGRAM PER KILOGRAM, QW
     Route: 058
     Dates: start: 20120425
  2. REBETOL [Suspect]
     Indication: CHRONIC HEPATITIS C
     Dosage: 600 MG, QD
     Route: 048
     Dates: start: 20120425, end: 20120606
  3. REBETOL [Suspect]
     Dosage: 400 MG, QD
     Route: 048
     Dates: start: 20120607
  4. TELAVIC [Suspect]
     Indication: CHRONIC HEPATITIS C
     Dosage: 2250 MG, QD
     Route: 048
     Dates: start: 20120425, end: 20120523
  5. TELAVIC [Suspect]
     Dosage: 1500 MG, QD
     Route: 048
     Dates: start: 20120524, end: 20120613
  6. TELAVIC [Suspect]
     Dosage: 750 MG, QD
     Dates: start: 20120614, end: 20120718
  7. CRAVIT [Concomitant]
     Indication: CYSTITIS
     Dosage: 500 MG PER DAY AS NEEDED FORMULATION:POR
     Route: 048
     Dates: start: 20120502
  8. ZYLORIC [Concomitant]
     Indication: HYPERURICAEMIA
     Dosage: 200 MG, QD
     Route: 048
     Dates: start: 20120509, end: 20120718
  9. BAKTAR [Concomitant]
     Indication: CYSTITIS
     Dosage: FORMULATION:POR
     Route: 048
     Dates: start: 20120530
  10. AZUNOL (SODIUM GUALENATE) [Concomitant]
     Indication: STOMATITIS
     Dosage: UNK, AS NEEDED
     Route: 049
     Dates: start: 20120711, end: 20120815
  11. ANTEBATE [Concomitant]
     Dosage: UNK UNK, AS NEEDED
     Route: 061

REACTIONS (5)
  - Anaemia [Recovered/Resolved]
  - Decreased appetite [Recovering/Resolving]
  - White blood cell count decreased [Recovered/Resolved]
  - Decreased appetite [Recovered/Resolved]
  - Hyperuricaemia [None]
